FAERS Safety Report 22180375 (Version 1)
Quarter: 2023Q2

REPORT INFORMATION
  Report Type: Other
  Country: US (occurrence: None)
  Receive Date: 20230406
  Receipt Date: 20230406
  Transmission Date: 20230722
  Serious: Yes (Death)
  Sender: FDA-Public Use
  Company Number: US-ROCHE-3324759

PATIENT
  Age: 59 Year
  Sex: Male

DRUGS (1)
  1. HERCEPTIN [Suspect]
     Active Substance: TRASTUZUMAB
     Indication: Oesophageal carcinoma
     Dosage: INFUSE 378MG INTRAVENOUSLY EVERY 2 WEEK(S)
     Route: 042

REACTIONS (2)
  - Death [Fatal]
  - Off label use [Fatal]
